FAERS Safety Report 9850774 (Version 1)
Quarter: 2014Q1

REPORT INFORMATION
  Report Type: Spontaneous
  Country: US (occurrence: US)
  Receive Date: 20140128
  Receipt Date: 20140128
  Transmission Date: 20141002
  Serious: Yes (Other)
  Sender: FDA-Public Use
  Company Number: US-TEVA-424115USA

PATIENT
  Age: 68 Year
  Sex: Male

DRUGS (1)
  1. AMIODARONE [Suspect]

REACTIONS (3)
  - Blindness [Unknown]
  - Optic nerve disorder [Unknown]
  - Visual impairment [Unknown]
